FAERS Safety Report 4900720-6 (Version None)
Quarter: 2006Q1

REPORT INFORMATION
  Report Type: 
  Country: None (occurrence: None)
  Receive Date: 20060201
  Receipt Date: 20060119
  Transmission Date: 20060701
  Serious: Yes (Hospitalization)
  Sender: FDA-Public Use
  Company Number: 53999/34

PATIENT
  Age: 26 Year
  Sex: Female

DRUGS (2)
  1. FLUCONAZOLE [Suspect]
     Indication: CANDIDIASIS
     Dosage: 50 MG/DAY ORAL
     Route: 048
     Dates: start: 20051027, end: 20051125
  2. NORGESTON TABLET [Suspect]
     Dosage: 30 MG ORAL
     Route: 048
     Dates: end: 20051224

REACTIONS (2)
  - DRUG INTERACTION [None]
  - HAEMORRHAGE [None]
